FAERS Safety Report 7180990-7 (Version None)
Quarter: 2010Q4

REPORT INFORMATION
  Report Type: 
  Country: None (occurrence: None)
  Receive Date: 20101221
  Receipt Date: 20100414
  Transmission Date: 20110411
  Serious: Yes (Hospitalization)
  Sender: FDA-Public Use
  Company Number: US-AMGEN-QUU406351

PATIENT

DRUGS (2)
  1. ENBREL [Suspect]
     Indication: RHEUMATOID ARTHRITIS
     Dosage: 50 MG, QWK
     Route: 058
     Dates: start: 20051201, end: 20091101
  2. SULFASALAZINE [Concomitant]
     Dosage: 500 MG, BID
     Route: 048

REACTIONS (8)
  - ARTHRALGIA [None]
  - BREAST PAIN [None]
  - INJECTION SITE ERYTHEMA [None]
  - INJECTION SITE PAIN [None]
  - JOINT SWELLING [None]
  - MOVEMENT DISORDER [None]
  - SUPERINFECTION [None]
  - VULVOVAGINAL MYCOTIC INFECTION [None]
